FAERS Safety Report 9146468 (Version 1)
Quarter: 2013Q1

REPORT INFORMATION
  Report Type: Spontaneous
  Country: US (occurrence: None)
  Receive Date: 20130204
  Receipt Date: 20130204
  Transmission Date: 20140127
  Serious: Yes (Death)
  Sender: FDA-Public Use
  Company Number: IMP_06236_2013

PATIENT
  Age: 11 Year
  Sex: Male

DRUGS (7)
  1. OXYMORPHONE [Suspect]
     Indication: PRODUCT USED FOR UNKNOWN INDICATION
     Dosage: (DF)
  2. OXYCODONE [Suspect]
     Indication: PRODUCT USED FOR UNKNOWN INDICATION
     Dosage: (DF)
  3. PAINT AEROSOL [Suspect]
     Dosage: (DF)
  4. NAPHTHALENE [Suspect]
     Dosage: (DF)
  5. ETHANOL [Suspect]
     Dosage: (DF)
  6. ACETAMINOPHEN [Suspect]
     Indication: PRODUCT USED FOR UNKNOWN INDICATION
     Dosage: (DF)
  7. MIDAZOLAM [Suspect]
     Indication: PRODUCT USED FOR UNKNOWN INDICATION
     Dosage: (DF)

REACTIONS (3)
  - Cardiac arrest [None]
  - Respiratory arrest [None]
  - Intentional drug misuse [None]
